FAERS Safety Report 15928017 (Version 1)
Quarter: 2019Q1

REPORT INFORMATION
  Report Type: Report from Study
  Country: None (occurrence: LB)
  Receive Date: 20190205
  Receipt Date: 20190205
  Transmission Date: 20190417
  Serious: Yes (Hospitalization)
  Sender: FDA-Public Use
  Company Number: LB-ABBVIE-19K-093-2649787-00

PATIENT
  Age: 29 Year
  Sex: Female
  Weight: 65 kg

DRUGS (6)
  1. HUMIRA [Suspect]
     Active Substance: ADALIMUMAB
     Indication: CROHN^S DISEASE
     Dosage: 160 MG 1ST LOADING DOSE
     Route: 058
     Dates: start: 201607, end: 201607
  2. MYDOCALM [Concomitant]
     Indication: PRODUCT USED FOR UNKNOWN INDICATION
  3. HUMIRA [Suspect]
     Active Substance: ADALIMUMAB
     Route: 058
     Dates: start: 201608, end: 20181003
  4. HUMIRA [Suspect]
     Active Substance: ADALIMUMAB
     Route: 058
     Dates: start: 201901
  5. HUMIRA [Suspect]
     Active Substance: ADALIMUMAB
     Route: 058
     Dates: start: 201811, end: 201901
  6. HUMIRA [Suspect]
     Active Substance: ADALIMUMAB
     Dosage: 80 MG 2ND LOADING DOSE
     Route: 058
     Dates: start: 201608, end: 201608

REACTIONS (1)
  - Intestinal fistula [Recovered/Resolved]

NARRATIVE: CASE EVENT DATE: 201901
